FAERS Safety Report 8960890 (Version 1)
Quarter: 2012Q4

REPORT INFORMATION
  Report Type: 
  Country: CA (occurrence: CA)
  Receive Date: 20121212
  Receipt Date: 20121212
  Transmission Date: 20130627
  Serious: Yes (Death)
  Sender: FDA-Public Use
  Company Number: CA-JNJFOC-20121202815

PATIENT
  Age: 15 Year
  Sex: Female

DRUGS (2)
  1. PREPULSID [Suspect]
     Indication: ABDOMINAL DISTENSION
     Route: 065
  2. PREPULSID [Suspect]
     Indication: GASTROOESOPHAGEAL REFLUX DISEASE
     Route: 065

REACTIONS (2)
  - Cardiac arrest [Fatal]
  - Syncope [Unknown]
